FAERS Safety Report 6800623-6 (Version None)
Quarter: 2010Q2

REPORT INFORMATION
  Report Type: 
  Country: None (occurrence: None)
  Receive Date: 20100629
  Receipt Date: 20100617
  Transmission Date: 20101027
  Serious: Yes (Other)
  Sender: FDA-Public Use
  Company Number: GB-BAYER-201028197GPV

PATIENT
  Age: 33 Year
  Sex: Female

DRUGS (2)
  1. MIRENA [Suspect]
     Indication: DRUG USE FOR UNKNOWN INDICATION
     Route: 015
     Dates: start: 20080301
  2. GENERAL ANAESTHETIC (NOS) [Concomitant]
     Indication: LAPAROSCOPY

REACTIONS (2)
  - INFERTILITY [None]
  - UTERINE PERFORATION [None]
